FAERS Safety Report 21743255 (Version 1)
Quarter: 2022Q4

REPORT INFORMATION
  Report Type: Report from Study
  Country: US (occurrence: US)
  Receive Date: 20221217
  Receipt Date: 20221217
  Transmission Date: 20230112
  Serious: No
  Sender: FDA-Public Use
  Company Number: US-ABBVIE-4202899

PATIENT
  Sex: Female

DRUGS (1)
  1. HUMIRA [Suspect]
     Active Substance: ADALIMUMAB
     Indication: Ankylosing spondylitis
     Dosage: CITRATE FREE
     Route: 058

REACTIONS (5)
  - Type 1 diabetes mellitus [Unknown]
  - Skin disorder [Unknown]
  - Hypothyroidism [Unknown]
  - Endometriosis [Unknown]
  - Crohn^s disease [Not Recovered/Not Resolved]
